FAERS Safety Report 6342131-5 (Version None)
Quarter: 2009Q3

REPORT INFORMATION
  Report Type: 
  Country: None (occurrence: None)
  Receive Date: 20090904
  Receipt Date: 20090904
  Transmission Date: 20100115
  Serious: Yes (Other)
  Sender: FDA-Public Use
  Company Number: None

PATIENT
  Age: 50 Year
  Sex: Female
  Weight: 99.7913 kg

DRUGS (1)
  1. ACTONEL [Suspect]
     Indication: OSTEOPOROSIS
     Dosage: 150MG 1X PER MONTH PO
     Route: 048
     Dates: start: 20090902, end: 20090902

REACTIONS (3)
  - CHEST DISCOMFORT [None]
  - MUSCULAR WEAKNESS [None]
  - MYALGIA [None]
